FAERS Safety Report 24045039 (Version 1)
Quarter: 2024Q3

REPORT INFORMATION
  Report Type: Spontaneous
  Country: US (occurrence: US)
  Receive Date: 20240703
  Receipt Date: 20240703
  Transmission Date: 20241017
  Serious: No
  Sender: MISSION
  Company Number: US-Mission Pharmacal Company-2158790

PATIENT
  Age: 88 Year
  Sex: Male

DRUGS (16)
  1. THIOLA EC [Suspect]
     Active Substance: TIOPRONIN
     Indication: Cystinuria
     Route: 048
     Dates: start: 20190926
  2. TOPIRAMATE [Concomitant]
     Active Substance: TOPIRAMATE
  3. VITAMIN B12 [Concomitant]
     Active Substance: CYANOCOBALAMIN
  4. Osteo Bi-flex Adv Triple St [Concomitant]
  5. ELIQUIS [Concomitant]
     Active Substance: APIXABAN
  6. AMLODIPINE [Concomitant]
     Active Substance: AMLODIPINE BESYLATE
  7. ATENOLOL [Concomitant]
     Active Substance: ATENOLOL
  8. TRELEGY ELLIPTA [Concomitant]
     Active Substance: FLUTICASONE FUROATE\UMECLIDINIUM BROMIDE\VILANTEROL TRIFENATATE
  9. DEXILANT [Concomitant]
     Active Substance: DEXLANSOPRAZOLE
  10. INCRUSE ELLIPTA [Concomitant]
     Active Substance: UMECLIDINIUM BROMIDE
  11. DICLOFENAC [Concomitant]
     Active Substance: DICLOFENAC
  12. TAMSULOSIN [Concomitant]
     Active Substance: TAMSULOSIN
  13. PREDNISONE [Concomitant]
     Active Substance: PREDNISONE
  14. PRALUENT [Concomitant]
     Active Substance: ALIROCUMAB
  15. POTASSIUM CITRATE-CITRIC ACID [Concomitant]
     Active Substance: CITRIC ACID MONOHYDRATE\POTASSIUM CITRATE
  16. ASPIRIN [Concomitant]
     Active Substance: ASPIRIN

REACTIONS (1)
  - Tremor [Unknown]
